FAERS Safety Report 24954180 (Version 1)
Quarter: 2025Q1

REPORT INFORMATION
  Report Type: Spontaneous
  Country: CA (occurrence: CA)
  Receive Date: 20250211
  Receipt Date: 20250211
  Transmission Date: 20250409
  Serious: Yes (Other)
  Sender: AUROBINDO
  Company Number: CA-AUROBINDO-AUR-APL-2025-006590

PATIENT
  Sex: Male

DRUGS (2)
  1. GALANTAMINE [Suspect]
     Active Substance: GALANTAMINE
     Indication: Amnesia
     Route: 065
  2. MEMANTINE [Suspect]
     Active Substance: MEMANTINE
     Indication: Product used for unknown indication
     Route: 065

REACTIONS (5)
  - Aphasia [Unknown]
  - Freezing phenomenon [Unknown]
  - Headache [Unknown]
  - Pain [Unknown]
  - Paralysis [Unknown]
